FAERS Safety Report 14995918 (Version 1)
Quarter: 2018Q2

REPORT INFORMATION
  Report Type: Spontaneous
  Country: US (occurrence: US)
  Receive Date: 20180611
  Receipt Date: 20180611
  Transmission Date: 20180711
  Serious: Yes (Other)
  Sender: FDA-Public Use
  Company Number: US-PFIZER INC-2018231202

PATIENT
  Age: 68 Year
  Sex: Female
  Weight: 92 kg

DRUGS (2)
  1. FASLODEX [Concomitant]
     Active Substance: FULVESTRANT
     Dosage: UNK
  2. IBRANCE [Suspect]
     Active Substance: PALBOCICLIB
     Indication: BREAST CANCER STAGE IV
     Dosage: 100 MG, CYCLIC(100 MG CAPSULE, 1 DAILY BY MOUTH FOR 21 DAYS, THEN OFF FOR 7 DAYS)
     Route: 048
     Dates: start: 2015

REACTIONS (2)
  - Neoplasm progression [Unknown]
  - Osteonecrosis of jaw [Not Recovered/Not Resolved]

NARRATIVE: CASE EVENT DATE: 201702
